FAERS Safety Report 24104958 (Version 1)
Quarter: 2024Q3

REPORT INFORMATION
  Report Type: Spontaneous
  Country: IN (occurrence: IN)
  Receive Date: 20240717
  Receipt Date: 20240717
  Transmission Date: 20241017
  Serious: Yes (Disabling, Other)
  Sender: BAYER
  Company Number: IN-MLMSERVICE-20240704-PI119586-00138-2

PATIENT
  Age: 27 Year
  Sex: Female

DRUGS (2)
  1. DROSPIRENONE\ESTRADIOL [Suspect]
     Active Substance: DROSPIRENONE\ESTRADIOL
     Indication: Hormone therapy
     Route: 048
  2. DROSPIRENONE\ESTRADIOL [Suspect]
     Active Substance: DROSPIRENONE\ESTRADIOL
     Indication: Polycystic ovarian syndrome

REACTIONS (2)
  - Dry eye [None]
  - Meibomian gland dysfunction [None]
